FAERS Safety Report 18782038 (Version 1)
Quarter: 2021Q1

REPORT INFORMATION
  Report Type: Spontaneous
  Country: US (occurrence: US)
  Receive Date: 20210125
  Receipt Date: 20210125
  Transmission Date: 20210419
  Serious: No
  Sender: FDA-Public Use
  Company Number: US-ALLERGAN-2017764US

PATIENT
  Sex: Female

DRUGS (3)
  1. TIMOLOL MALEATE. [Concomitant]
     Active Substance: TIMOLOL MALEATE
     Indication: INTRAOCULAR PRESSURE INCREASED
     Dosage: 2 GTT
     Route: 047
  2. RESTASIS [Suspect]
     Active Substance: CYCLOSPORINE
     Indication: DRY EYE
     Dosage: 2 GTT, (1 GTT TO EACH EYE)BID
     Route: 047
  3. LATANOPROST. [Concomitant]
     Active Substance: LATANOPROST
     Indication: INTRAOCULAR PRESSURE INCREASED
     Dosage: 2 GTT
     Route: 047

REACTIONS (2)
  - Product delivery mechanism issue [Unknown]
  - Product dispensing error [Unknown]
